FAERS Safety Report 6683284-9 (Version None)
Quarter: 2010Q2

REPORT INFORMATION
  Report Type: 
  Country: None (occurrence: None)
  Receive Date: 20100415
  Receipt Date: 20100329
  Transmission Date: 20101027
  Serious: Yes (Hospitalization, Other)
  Sender: FDA-Public Use
  Company Number: KR-WYE-H13233110

PATIENT
  Sex: Male
  Weight: 57.3 kg

DRUGS (5)
  1. TEMSIROLIMUS [Suspect]
     Indication: METASTATIC RENAL CELL CARCINOMA
     Route: 042
     Dates: start: 20091027, end: 20100125
  2. MAGNESIUM OXIDE [Concomitant]
     Indication: CONSTIPATION PROPHYLAXIS
     Dosage: UNKNOWN
     Dates: start: 20100119, end: 20100125
  3. METOCLOPRAMIDE HYDROCHLORIDE [Concomitant]
     Indication: PROPHYLAXIS OF NAUSEA AND VOMITING
     Dosage: UNKNOWN
     Dates: start: 20091214, end: 20100125
  4. TAMSULOSIN HCL [Concomitant]
     Indication: BENIGN PROSTATIC HYPERPLASIA
     Dosage: UNKNOWN
     Dates: start: 20090826, end: 20100125
  5. LACTIC ACID/SODIUM PIDOLATE [Concomitant]
     Indication: PRURITUS
     Dosage: UNKNOWN
     Dates: start: 20091201, end: 20100125

REACTIONS (4)
  - HEPATITIS B [None]
  - INTESTINAL ULCER PERFORATION [None]
  - PERITONITIS [None]
  - PULMONARY OEDEMA [None]
